FAERS Safety Report 4474643-3 (Version None)
Quarter: 2004Q4

REPORT INFORMATION
  Report Type: 
  Country: None (occurrence: None)
  Receive Date: 20041012
  Receipt Date: 20040928
  Transmission Date: 20050328
  Serious: Yes (Other)
  Sender: FDA-Public Use
  Company Number: 2004235907AU

PATIENT
  Age: 65 Year
  Sex: Male

DRUGS (7)
  1. CISPLATIN [Suspect]
     Indication: MULTIPLE MYELOMA
  2. ADRIAMYCIN PFS [Suspect]
     Indication: MULTIPLE MYELOMA
  3. CYCLOPHOSPHAMIDE [Suspect]
     Indication: MULTIPLE MYELOMA
  4. DEXAMETHASONE [Suspect]
     Indication: MULTIPLE MYELOMA
  5. DEXAMETHASONE [Suspect]
     Indication: MULTIPLE MYELOMA
  6. I.V. SOLUTIONS [Concomitant]
  7. FRUSEMIDE [Concomitant]

REACTIONS (7)
  - BLINDNESS CORTICAL [None]
  - COMA [None]
  - EXTRAOCULAR MUSCLE PARESIS [None]
  - FLUID OVERLOAD [None]
  - HYPERTENSION [None]
  - LEUKOENCEPHALOPATHY [None]
  - SEPSIS [None]
